FAERS Safety Report 26087386 (Version 1)
Quarter: 2025Q4

REPORT INFORMATION
  Report Type: Spontaneous
  Country: EU (occurrence: EU)
  Receive Date: 20251125
  Receipt Date: 20251125
  Transmission Date: 20260118
  Serious: Yes (Other)
  Sender: AMGEN
  Company Number: EU-AMGEN-IRLSP2025230020

PATIENT
  Age: 2 Year
  Sex: Female

DRUGS (11)
  1. ADALIMUMAB [Suspect]
     Active Substance: ADALIMUMAB
     Indication: Product used for unknown indication
     Dosage: UNK
     Route: 065
  2. TOCILIZUMAB [Concomitant]
     Active Substance: TOCILIZUMAB
     Dosage: UNK UNK, QWK
     Route: 040
  3. MYCOPHENOLATE MOFETIL [Concomitant]
     Active Substance: MYCOPHENOLATE MOFETIL
  4. TOFACITINIB [Concomitant]
     Active Substance: TOFACITINIB
  5. PREDNISOLONE [Concomitant]
     Active Substance: PREDNISOLONE
  6. SULFAMETHOXAZOLE\TRIMETHOPRIM [Concomitant]
     Active Substance: SULFAMETHOXAZOLE\TRIMETHOPRIM
  7. ACYCLOVIR [Concomitant]
     Active Substance: ACYCLOVIR
  8. CORTICOSTEROID NOS [Concomitant]
     Active Substance: CORTICOSTEROID NOS
     Route: 035
  9. METHYLPREDNISOLONE [Concomitant]
     Active Substance: METHYLPREDNISOLONE
     Route: 040
  10. METHOTREXATE [Concomitant]
     Active Substance: METHOTREXATE
  11. INFLIXIMAB [Concomitant]
     Active Substance: INFLIXIMAB

REACTIONS (13)
  - Polyarthritis [Unknown]
  - Uveitis [Unknown]
  - Acute kidney injury [Unknown]
  - Nephrocalcinosis [Unknown]
  - Granulomatous liver disease [Unknown]
  - Activities of daily living decreased [Unknown]
  - Tenosynovitis [Unknown]
  - Hypercalcaemia [Unknown]
  - Arthritis [Unknown]
  - Eye disorder [Unknown]
  - Keratopathy [Unknown]
  - Visual impairment [Unknown]
  - Granulomatous dermatitis [Unknown]
